FAERS Safety Report 7209942-5 (Version None)
Quarter: 2011Q1

REPORT INFORMATION
  Report Type: 
  Country: None (occurrence: None)
  Receive Date: 20110105
  Receipt Date: 20101222
  Transmission Date: 20110831
  Serious: No
  Sender: FDA-Public Use
  Company Number: US-BIOGENIDEC-2010BI032422

PATIENT
  Sex: Female

DRUGS (2)
  1. TYSABRI [Suspect]
     Indication: MULTIPLE SCLEROSIS
     Route: 042
     Dates: start: 20040101, end: 20050201
  2. TYSABRI [Suspect]
     Route: 042
     Dates: start: 20070313, end: 20101109

REACTIONS (6)
  - DRUG HYPERSENSITIVITY [None]
  - FALL [None]
  - MIGRAINE [None]
  - DRUG SPECIFIC ANTIBODY PRESENT [None]
  - TREMOR [None]
  - CONTUSION [None]
